FAERS Safety Report 10927012 (Version 1)
Quarter: 2015Q1

REPORT INFORMATION
  Report Type: Report from Study
  Country: BR (occurrence: BR)
  Receive Date: 20150318
  Receipt Date: 20150318
  Transmission Date: 20150721
  Serious: Yes (Other)
  Sender: FDA-Public Use
  Company Number: BR-ABBVIE-15K-020-1361172-00

PATIENT
  Age: 47 Year
  Sex: Female
  Weight: 81 kg

DRUGS (1)
  1. HUMIRA [Suspect]
     Active Substance: ADALIMUMAB
     Indication: ANKYLOSING SPONDYLITIS
     Route: 058
     Dates: start: 20101201, end: 20111201

REACTIONS (10)
  - Pain [Not Recovered/Not Resolved]
  - Hypertension [Unknown]
  - Breast mass [Not Recovered/Not Resolved]
  - Tonsillectomy [Recovered/Resolved]
  - Breast mass [Recovered/Resolved]
  - Nasal septal operation [Recovered/Resolved]
  - Inflammation [Unknown]
  - Salpingitis [Not Recovered/Not Resolved]
  - Breast cyst [Unknown]
  - Ovarian cyst [Not Recovered/Not Resolved]

NARRATIVE: CASE EVENT DATE: 2011
